FAERS Safety Report 21038620 (Version 1)
Quarter: 2022Q3

REPORT INFORMATION
  Report Type: Report from Study
  Country: US (occurrence: US)
  Receive Date: 20220704
  Receipt Date: 20220704
  Transmission Date: 20221026
  Serious: Yes (Other)
  Sender: FDA-Public Use
  Company Number: US-BRISTOL-MYERS SQUIBB COMPANY-2022-062150

PATIENT
  Age: 78 Year
  Sex: Male
  Weight: 107.95 kg

DRUGS (1)
  1. REVLIMID [Suspect]
     Active Substance: LENALIDOMIDE
     Indication: Plasma cell myeloma
     Dosage: EVERY OTHER DAY
     Route: 048

REACTIONS (2)
  - Skin cancer [Unknown]
  - Off label use [Unknown]
